FAERS Safety Report 24028960 (Version 1)
Quarter: 2024Q2

REPORT INFORMATION
  Report Type: Spontaneous
  Country: US (occurrence: None)
  Receive Date: 20240627
  Receipt Date: 20240627
  Transmission Date: 20240716
  Serious: No
  Sender: FDA-Public Use
  Company Number: None

PATIENT
  Age: 76 Year
  Sex: Female

DRUGS (1)
  1. PAXLOVID [Suspect]
     Active Substance: NIRMATRELVIR\RITONAVIR
     Indication: COVID-19
     Dates: start: 20240614, end: 20240616

REACTIONS (4)
  - Therapy interrupted [None]
  - Diarrhoea [None]
  - COVID-19 [None]
  - Nausea [None]

NARRATIVE: CASE EVENT DATE: 20240626
